FAERS Safety Report 20937686 (Version 2)
Quarter: 2024Q2

REPORT INFORMATION
  Report Type: Spontaneous
  Country: GB (occurrence: GB)
  Receive Date: 20220609
  Receipt Date: 20240522
  Transmission Date: 20240715
  Serious: Yes (Death)
  Sender: FDA-Public Use
  Company Number: GB-TEVA-2022-GB-2045309

PATIENT
  Age: 36 Year
  Sex: Male

DRUGS (1)
  1. TRAMADOL [Suspect]
     Active Substance: TRAMADOL\TRAMADOL HYDROCHLORIDE
     Indication: Pain
     Dosage: DOSAGE TEXT: HE TOOK TWICE THE RECOMMENDED MAXIMUM DOSE.
     Route: 065

REACTIONS (3)
  - Death [Fatal]
  - Overdose [Fatal]
  - Toxicity to various agents [Fatal]
